FAERS Safety Report 14611541 (Version 1)
Quarter: 2018Q1

REPORT INFORMATION
  Report Type: Spontaneous
  Country: FR (occurrence: FR)
  Receive Date: 20180308
  Receipt Date: 20180308
  Transmission Date: 20180509
  Serious: Yes (Hospitalization)
  Sender: FDA-Public Use
  Company Number: FR-009507513-1803FRA000258

PATIENT
  Age: 6 Year
  Sex: Male
  Weight: 25 kg

DRUGS (4)
  1. CELESTENE [Suspect]
     Active Substance: BETAMETHASONE
     Indication: EAR INFECTION
     Dosage: UNK
     Route: 048
     Dates: start: 20180131, end: 20180205
  2. OFLOCET (OFLOXACIN) [Concomitant]
     Active Substance: OFLOXACIN
     Indication: EAR INFECTION
     Dosage: UNK; STRENGTH: 1,5 MG/0,5 ML
     Route: 001
     Dates: start: 20180131, end: 20180205
  3. DOLIPRANE [Concomitant]
     Active Substance: ACETAMINOPHEN
     Indication: EAR INFECTION
     Dosage: UNK
     Dates: start: 20180131
  4. CHILDRENS ADVIL [Suspect]
     Active Substance: IBUPROFEN
     Indication: EAR INFECTION
     Dosage: UNK; STRENGTH: 20 MG/1 ML
     Route: 048
     Dates: start: 20180131, end: 20180205

REACTIONS (2)
  - Condition aggravated [Recovered/Resolved]
  - Transverse sinus thrombosis [Recovering/Resolving]

NARRATIVE: CASE EVENT DATE: 20180205
